FAERS Safety Report 9307431 (Version 3)
Quarter: 2014Q3

REPORT INFORMATION
  Report Type: Spontaneous
  Country: US (occurrence: US)
  Receive Date: 20130524
  Receipt Date: 20140723
  Transmission Date: 20150326
  Serious: Yes (Hospitalization, Other)
  Sender: FDA-Public Use
  Company Number: US-009507513-1305USA012085

PATIENT
  Sex: Female

DRUGS (1)
  1. NUVARING [Suspect]
     Active Substance: ETHINYL ESTRADIOL\ETONOGESTREL
     Indication: CONTRACEPTION
     Dosage: UNK
     Route: 067
     Dates: start: 2007, end: 201208

REACTIONS (7)
  - Surgery [Unknown]
  - Thrombosis [Not Recovered/Not Resolved]
  - Deep vein thrombosis [Recovered/Resolved]
  - Sinusitis [Unknown]
  - Mammoplasty [Unknown]
  - Deep vein thrombosis [Recovering/Resolving]
  - Migraine [Unknown]

NARRATIVE: CASE EVENT DATE: 2008
